FAERS Safety Report 8052588-X (Version None)
Quarter: 2012Q1

REPORT INFORMATION
  Report Type: 
  Country: None (occurrence: None)
  Receive Date: 20120111
  Receipt Date: 20110921
  Transmission Date: 20120608
  Serious: No
  Sender: FDA-Public Use
  Company Number: AECAN201100249

PATIENT
  Age: 87 Year
  Sex: Female
  Weight: 63.5036 kg

DRUGS (1)
  1. ALBUMIN (HUMAN) [Suspect]
     Indication: PRODUCT USED FOR UNKNOWN INDICATION
     Dosage: 100 ML;1X;IV
     Route: 042
     Dates: start: 20110919, end: 20110919

REACTIONS (2)
  - BODY TEMPERATURE INCREASED [None]
  - INFUSION RELATED REACTION [None]
